FAERS Safety Report 6842420-1 (Version None)
Quarter: 2010Q3

REPORT INFORMATION
  Report Type: 
  Country: None (occurrence: None)
  Receive Date: 20100714
  Receipt Date: 20070729
  Transmission Date: 20110219
  Serious: No
  Sender: FDA-Public Use
  Company Number: US-PFIZER INC-2007063573

PATIENT
  Age: 52 Year
  Sex: Male
  Weight: 56.7 kg

DRUGS (3)
  1. CHANTIX [Suspect]
     Indication: SMOKING CESSATION THERAPY
     Dosage: 0.5MG QD EVERY DAY TDD:0.5MG
     Dates: start: 20070704
  2. CITALOPRAM HYDROBROMIDE [Concomitant]
  3. VITAMINS [Concomitant]

REACTIONS (2)
  - INCORRECT DOSE ADMINISTERED [None]
  - NAUSEA [None]
